FAERS Safety Report 5670037-3 (Version None)
Quarter: 2008Q1

REPORT INFORMATION
  Report Type: 
  Country: None (occurrence: None)
  Receive Date: 20080312
  Receipt Date: 20080122
  Transmission Date: 20080703
  Serious: Yes (Death, Hospitalization, Other)
  Sender: FDA-Public Use
  Company Number: 2008AL001105

PATIENT
  Age: 25 Year
  Sex: Male

DRUGS (11)
  1. IBUPROFEN [Suspect]
     Indication: PAIN IN EXTREMITY
     Dosage: 200 MG; QD; PO
     Route: 048
  2. TENOFOVIR [Concomitant]
  3. EFAVIRENZ [Concomitant]
  4. COMBIVIR [Concomitant]
  5. NEVIRAPINE [Concomitant]
  6. CLARITHROMYCIN [Concomitant]
  7. CIPROFLOXACIN [Concomitant]
  8. LAMIVUDINE [Concomitant]
  9. CO-TRIMOXAZOLE [Concomitant]
  10. LOPERAMIDE HCL [Concomitant]
  11. BACTRIM [Concomitant]

REACTIONS (5)
  - AGITATION [None]
  - COUGH [None]
  - PAIN IN EXTREMITY [None]
  - SEPSIS [None]
  - VANISHING BILE DUCT SYNDROME [None]
